FAERS Safety Report 7497569-X (Version None)
Quarter: 2011Q2

REPORT INFORMATION
  Report Type: 
  Country: None (occurrence: None)
  Receive Date: 20110523
  Receipt Date: 20110511
  Transmission Date: 20111010
  Serious: Yes (Hospitalization, Other)
  Sender: FDA-Public Use
  Company Number: PHEH2008US07164

PATIENT
  Sex: Male

DRUGS (30)
  1. AMPICILLIN SODIUM [Concomitant]
  2. AMLODIPINE [Concomitant]
     Dosage: 5 MG, QD
  3. MORPHINE SULFATE [Concomitant]
  4. SIMVASTATIN [Concomitant]
     Dosage: UNK
     Route: 048
  5. ACETAMINOPHEN [Concomitant]
  6. LISINOPRIL [Concomitant]
     Dosage: 20 MG, QD
     Route: 048
     Dates: start: 20080722
  7. PENICILLIN ^GRUNENTHAL^ [Concomitant]
  8. INSULIN [Concomitant]
  9. DITROPAN [Concomitant]
     Dosage: 5 MG, TID
  10. CEFAZOLIN [Concomitant]
  11. FENTANYL [Concomitant]
  12. PLENDIL [Concomitant]
  13. OMEPRAZOLE [Concomitant]
  14. ZOLADEX [Concomitant]
  15. FELODIPINE [Concomitant]
     Dosage: 5 MG, QD
     Dates: start: 20080722
  16. RADIATION TREATMENT [Concomitant]
  17. ALTACE [Concomitant]
  18. TOPROL-XL [Concomitant]
  19. LEVOFLOXACIN [Concomitant]
  20. ZOFRAN [Concomitant]
  21. ZOCOR [Concomitant]
  22. DIGOXIN [Concomitant]
     Dosage: 2.5 MG, UNK
  23. TOBRAMYCIN [Concomitant]
  24. PROTONIX [Concomitant]
  25. ZOMETA [Suspect]
     Dosage: MONTHLY
     Dates: start: 20040101, end: 20060101
  26. LANOXIN [Concomitant]
  27. QUINIDINE [Concomitant]
  28. ASPIRIN [Concomitant]
  29. GENTAMYCIN-MP [Concomitant]
  30. ATROPINE OPHTHALMIC [Concomitant]

REACTIONS (55)
  - DEPRESSION [None]
  - ABDOMINAL PAIN [None]
  - TRANSITIONAL CELL CARCINOMA [None]
  - BLADDER NECROSIS [None]
  - ULCER [None]
  - DIABETIC COMPLICATION [None]
  - HYDRONEPHROSIS [None]
  - HAEMATURIA [None]
  - OSTEONECROSIS OF JAW [None]
  - FALL [None]
  - WEIGHT DECREASED [None]
  - HEART RATE IRREGULAR [None]
  - CARDIAC MURMUR [None]
  - ARTERIOSCLEROSIS CORONARY ARTERY [None]
  - PAIN [None]
  - PHYSICAL DISABILITY [None]
  - GINGIVAL BLEEDING [None]
  - TOOTH LOSS [None]
  - ARTERIOSCLEROSIS [None]
  - NEUROENDOCRINE CARCINOMA [None]
  - DYSURIA [None]
  - DIABETIC EYE DISEASE [None]
  - URINARY RETENTION [None]
  - NEUROGENIC BLADDER [None]
  - SEBORRHOEIC KERATOSIS [None]
  - HYPERCHOLESTEROLAEMIA [None]
  - URETERIC DILATATION [None]
  - ABDOMINAL DISCOMFORT [None]
  - BACK PAIN [None]
  - NEUROPATHY PERIPHERAL [None]
  - ANXIETY [None]
  - ANHEDONIA [None]
  - OSTEOARTHRITIS [None]
  - AORTIC DISORDER [None]
  - MUSCULOSKELETAL PAIN [None]
  - SINUS TACHYCARDIA [None]
  - HYDROURETER [None]
  - NEOPLASM MALIGNANT [None]
  - BLADDER CANCER [None]
  - URINARY TRACT INFECTION [None]
  - INJURY [None]
  - METASTASES TO BONE [None]
  - ANAEMIA [None]
  - SPINAL OSTEOARTHRITIS [None]
  - MENTAL DISORDER [None]
  - RENAL FAILURE ACUTE [None]
  - HYPOKALAEMIA [None]
  - HYPOAESTHESIA [None]
  - URINE OUTPUT DECREASED [None]
  - OBSTRUCTIVE UROPATHY [None]
  - CONSTIPATION [None]
  - AORTIC STENOSIS [None]
  - MITRAL VALVE CALCIFICATION [None]
  - PLEURAL EFFUSION [None]
  - POLYNEUROPATHY [None]
